FAERS Safety Report 24046690 (Version 3)
Quarter: 2024Q3

REPORT INFORMATION
  Report Type: Report from Study
  Country: CO (occurrence: CO)
  Receive Date: 20240703
  Receipt Date: 20240923
  Transmission Date: 20241017
  Serious: Yes (Death, Hospitalization)
  Sender: NOVARTIS
  Company Number: CO-002147023-NVSC2024CO136570

PATIENT
  Age: 71 Year
  Sex: Female
  Weight: 53 kg

DRUGS (3)
  1. KISQALI [Suspect]
     Active Substance: RIBOCICLIB
     Indication: Hormone receptor positive HER2 negative breast cancer
     Dosage: 600 MG, QD
     Route: 048
     Dates: start: 20240413, end: 20240621
  2. KISQALI [Suspect]
     Active Substance: RIBOCICLIB
     Indication: Breast cancer
  3. FEMARA [Suspect]
     Active Substance: LETROZOLE
     Indication: Hormone receptor positive HER2 negative breast cancer
     Dosage: 2.5 MG, QD
     Route: 048
     Dates: start: 20240413, end: 20240621

REACTIONS (8)
  - Death [Fatal]
  - Fluid retention [Unknown]
  - Intra-abdominal fluid collection [Unknown]
  - Vomiting [Unknown]
  - Drug intolerance [Unknown]
  - Dizziness [Unknown]
  - General physical health deterioration [Unknown]
  - Weight decreased [Unknown]

NARRATIVE: CASE EVENT DATE: 20240828
